FAERS Safety Report 7829502-2 (Version None)
Quarter: 2011Q4

REPORT INFORMATION
  Report Type: 
  Country: None (occurrence: None)
  Receive Date: 20111020
  Receipt Date: 20111013
  Transmission Date: 20120403
  Serious: Yes (Hospitalization)
  Sender: FDA-Public Use
  Company Number: DK-ROCHE-802402

PATIENT
  Sex: Male

DRUGS (13)
  1. MABTHERA [Suspect]
     Route: 065
  2. CYCLOPHOSPHAMIDE [Suspect]
     Indication: B-CELL LYMPHOMA RECURRENT
     Route: 065
  3. MABTHERA [Suspect]
     Indication: B-CELL LYMPHOMA RECURRENT
     Route: 065
  4. MABTHERA [Suspect]
     Route: 065
  5. PREDNISONE [Suspect]
     Indication: B-CELL LYMPHOMA RECURRENT
     Route: 065
  6. ZEVALIN [Suspect]
     Dosage: DOSAGE FORM: KIT FOR RADIOPHARMACEUTICAL PREPARATION
     Route: 065
     Dates: start: 20060901, end: 20060901
  7. ZEVALIN [Suspect]
     Indication: B-CELL LYMPHOMA RECURRENT
     Dosage: DOSAGE FORM: KIT FOR RADIOPHARMACEUTICAL PREPARATION
     Route: 065
  8. VINCRISTINE [Suspect]
     Indication: B-CELL LYMPHOMA RECURRENT
     Route: 065
  9. PREDNISONE [Suspect]
     Route: 065
  10. DOXORUBICIN HCL [Suspect]
     Indication: B-CELL LYMPHOMA RECURRENT
     Route: 065
  11. MABTHERA [Suspect]
     Route: 065
  12. YTTRIUM-90 [Suspect]
     Indication: B-CELL LYMPHOMA RECURRENT
     Dosage: REPORTED AS YTRACIS. DOSAGE FORM: KIT FOR RADIOPHARMACEUTICAL PREPARATION
     Route: 065
     Dates: start: 20060901, end: 20060901
  13. CYCLOPHOSPHAMIDE [Suspect]
     Route: 065

REACTIONS (1)
  - MYELODYSPLASTIC SYNDROME [None]
